FAERS Safety Report 10224420 (Version 1)
Quarter: 2014Q2

REPORT INFORMATION
  Report Type: Spontaneous
  Country: GR (occurrence: GR)
  Receive Date: 20140609
  Receipt Date: 20140609
  Transmission Date: 20141212
  Serious: Yes (Other)
  Sender: FDA-Public Use
  Company Number: GR-PAR PHARMACEUTICAL, INC-2014SCPR009125

PATIENT
  Sex: 0

DRUGS (10)
  1. CABERGOLINE [Suspect]
     Indication: PROLACTINOMA
     Dosage: 1.5 MG, WEEKLY
     Route: 065
  2. CABERGOLINE [Suspect]
     Dosage: 3.5 MG, WEEKLY
     Route: 065
  3. CABERGOLINE [Suspect]
     Dosage: 1 MG, WEEKLY
     Route: 065
  4. CABERGOLINE [Suspect]
     Dosage: 2 MG, WEEKLY
     Route: 065
  5. HYDROCORTISONE [Concomitant]
     Indication: BLOOD CORTISOL DECREASED
     Dosage: 20 MG, / DAY
     Route: 065
  6. HYDROCORTISONE [Concomitant]
     Indication: PROLACTINOMA
  7. THYROXINE [Concomitant]
     Indication: THYROXINE DECREASED
     Dosage: 100 ?G, / DAY
     Route: 065
  8. THYROXINE [Concomitant]
     Indication: PROLACTINOMA
  9. TESTOSTERONE [Concomitant]
     Indication: BLOOD TESTOSTERONE DECREASED
     Dosage: UNK UNK, UNKNOWN
     Route: 030
  10. TESTOSTERONE [Concomitant]
     Indication: PROLACTINOMA

REACTIONS (2)
  - Brain herniation [Recovered/Resolved]
  - Hemianopia [Recovering/Resolving]
